FAERS Safety Report 6482966-1 (Version None)
Quarter: 2009Q4

REPORT INFORMATION
  Report Type: 
  Country: None (occurrence: None)
  Receive Date: 20091123
  Receipt Date: 20090818
  Transmission Date: 20100525
  Serious: No
  Sender: FDA-Public Use
  Company Number: 8050580

PATIENT
  Age: 63 Year
  Sex: Male
  Weight: 92 kg

DRUGS (19)
  1. CIMZIA [Suspect]
     Indication: CROHN'S DISEASE
     Dosage: 400 MG SC
     Route: 058
     Dates: start: 20090520
  2. PREDNISONE TAB [Concomitant]
  3. CIPRO [Concomitant]
  4. PRILOSEC [Concomitant]
  5. LOMOTIL [Concomitant]
  6. LOPRESSOR [Concomitant]
  7. NORVASC [Concomitant]
  8. BONIVA [Concomitant]
  9. TEKTURNA [Concomitant]
  10. MOBIC [Concomitant]
  11. VICODIN [Concomitant]
  12. VITAMIN B-12 [Concomitant]
  13. VITAMIN D [Concomitant]
  14. GLIMEPIRIDE [Concomitant]
  15. PAXIL [Concomitant]
  16. LISINOPRIL [Concomitant]
  17. LIPITOR [Concomitant]
  18. LASIX [Concomitant]
  19. POTASSIUM [Concomitant]

REACTIONS (1)
  - HERPES ZOSTER [None]
